FAERS Safety Report 9754002 (Version 1)
Quarter: 2013Q4

REPORT INFORMATION
  Report Type: Spontaneous
  Country: US (occurrence: US)
  Receive Date: 20131213
  Receipt Date: 20131213
  Transmission Date: 20140711
  Serious: No
  Sender: FDA-Public Use
  Company Number: US-GLAXOSMITHKLINE-A1005843A

PATIENT
  Age: 65 Year
  Sex: Male

DRUGS (1)
  1. NICORETTE NICOTINE POLACRILEX CHERRY LOZENGE, 4MG [Suspect]
     Indication: SMOKING CESSATION THERAPY
     Route: 002
     Dates: start: 20121213, end: 20121214

REACTIONS (2)
  - Medication residue present [Recovered/Resolved]
  - Dry skin [Not Recovered/Not Resolved]
